FAERS Safety Report 7244323-X (Version None)
Quarter: 2011Q1

REPORT INFORMATION
  Report Type: 
  Country: None (occurrence: None)
  Receive Date: 20110125
  Receipt Date: 20110117
  Transmission Date: 20110831
  Serious: Yes (Other)
  Sender: FDA-Public Use
  Company Number: US-JNJFOC-20100508932

PATIENT
  Sex: Male
  Weight: 49.9 kg

DRUGS (9)
  1. PREDNISONE TAB [Concomitant]
     Indication: CROHN'S DISEASE
     Dosage: 0-40MG
  2. REMICADE [Suspect]
     Indication: CROHN'S DISEASE
     Route: 042
  3. REMICADE [Suspect]
     Route: 042
  4. MERCAPTOPURINE [Concomitant]
     Indication: CROHN'S DISEASE
     Dosage: 50- 75MG
  5. REMICADE [Suspect]
     Route: 042
  6. METRONIDAZOLE [Concomitant]
     Indication: CROHN'S DISEASE
  7. REMICADE [Suspect]
     Route: 042
  8. REMICADE [Suspect]
     Route: 042
  9. REMICADE [Suspect]
     Route: 042

REACTIONS (3)
  - COLONIC STENOSIS [None]
  - DRUG SPECIFIC ANTIBODY PRESENT [None]
  - TRANSFUSION [None]
